FAERS Safety Report 14816597 (Version 1)
Quarter: 2018Q2

REPORT INFORMATION
  Report Type: Spontaneous
  Country: US (occurrence: US)
  Receive Date: 20180426
  Receipt Date: 20180426
  Transmission Date: 20180711
  Serious: Yes (Life-Threatening, Hospitalization, Other)
  Sender: FDA-Public Use
  Company Number: US-PFIZER INC-AUR-APL-2009-01068

PATIENT
  Age: 6 Year
  Sex: Female

DRUGS (2)
  1. CEFTRIAXONE SODIUM. [Suspect]
     Active Substance: CEFTRIAXONE SODIUM
     Indication: PROPHYLAXIS
     Dosage: 50 MG/KG, DAILY (EVERY 24 HOURS)
     Route: 042
  2. MORPHINE [Concomitant]
     Active Substance: MORPHINE
     Indication: PAIN
     Dosage: UNK (DECREASED DOSE)
     Route: 042

REACTIONS (8)
  - Moaning [Unknown]
  - Incontinence [Unknown]
  - Haemolysis [Recovering/Resolving]
  - Neurological symptom [Recovering/Resolving]
  - Back pain [Unknown]
  - Cerebral ischaemia [Recovering/Resolving]
  - Vomiting [Unknown]
  - Femoral pulse abnormal [Unknown]
